FAERS Safety Report 9702581 (Version 1)
Quarter: 2013Q4

REPORT INFORMATION
  Report Type: Spontaneous
  Country: US (occurrence: US)
  Receive Date: 20131121
  Receipt Date: 20131121
  Transmission Date: 20140711
  Serious: Yes (Other)
  Sender: FDA-Public Use
  Company Number: US-SPECTRUM PHARMACEUTICALS, INC.-13-F-US-00222

PATIENT
  Age: 73 Year
  Sex: Male
  Weight: 71 kg

DRUGS (3)
  1. FOLOTYN [Suspect]
     Indication: PERIPHERAL T-CELL LYMPHOMA UNSPECIFIED REFRACTORY
     Dosage: 30MG/M2, 1XW
     Route: 042
     Dates: start: 20130726
  2. FOLOTYN [Suspect]
     Dosage: 30MG/M2, 1XW
     Route: 042
     Dates: start: 20130719
  3. FOLOTYN [Suspect]
     Dosage: 30MG/M2, 1XW
     Route: 042
     Dates: start: 20130628

REACTIONS (2)
  - Thrombocytopenia [Unknown]
  - Pyrexia [Recovered/Resolved]
